FAERS Safety Report 12668145 (Version 3)
Quarter: 2016Q3

REPORT INFORMATION
  Report Type: Report from Study
  Country: US (occurrence: US)
  Receive Date: 20160819
  Receipt Date: 20160915
  Transmission Date: 20161109
  Serious: Yes (Hospitalization, Other)
  Sender: FDA-Public Use
  Company Number: US-BAYER-2016-138345

PATIENT
  Age: 83 Year
  Sex: Male

DRUGS (2)
  1. STIVARGA [Suspect]
     Active Substance: REGORAFENIB
     Indication: RECTAL CANCER
     Dosage: 120 MG, QD
     Route: 048
     Dates: start: 20160422, end: 20160713
  2. STIVARGA [Suspect]
     Active Substance: REGORAFENIB
     Indication: RECTAL CANCER
     Dosage: 80 MG, QD
     Dates: start: 201507, end: 201608

REACTIONS (36)
  - Anaemia [None]
  - Dizziness [None]
  - Hypophagia [None]
  - Fatigue [Recovering/Resolving]
  - Tachypnoea [None]
  - Feeling abnormal [None]
  - Nausea [Recovering/Resolving]
  - Abdominal pain [Recovering/Resolving]
  - Gastrointestinal haemorrhage [None]
  - Fluid intake reduced [None]
  - Rectal haemorrhage [None]
  - Pouchitis [None]
  - Oedema peripheral [None]
  - Rales [None]
  - Diarrhoea [Recovering/Resolving]
  - Hypotension [None]
  - Malaise [None]
  - Constipation [None]
  - Rectal cancer [None]
  - Dyspnoea [None]
  - Melaena [Recovering/Resolving]
  - Faeces discoloured [None]
  - Drug tolerance decreased [None]
  - Dyspepsia [None]
  - Cough [None]
  - Decreased appetite [Recovering/Resolving]
  - Arthralgia [Recovering/Resolving]
  - Mucosal inflammation [Recovered/Resolved]
  - Proctitis [None]
  - Peripheral swelling [None]
  - Performance status decreased [None]
  - Oral candidiasis [None]
  - Gastritis [None]
  - Adverse drug reaction [None]
  - Weight decreased [Recovering/Resolving]
  - Decreased appetite [None]

NARRATIVE: CASE EVENT DATE: 2016
